FAERS Safety Report 8431210-4 (Version None)
Quarter: 2012Q2

REPORT INFORMATION
  Report Type: 
  Country: None (occurrence: None)
  Receive Date: 20120612
  Receipt Date: 20120605
  Transmission Date: 20120825
  Serious: Yes (Hospitalization)
  Sender: FDA-Public Use
  Company Number: DE-UCBSA-058970

PATIENT
  Sex: Male

DRUGS (2)
  1. SULFASALAZINE [Concomitant]
     Indication: RHEUMATOID ARTHRITIS
  2. CIMZIA [Suspect]
     Dosage: UNKNOWN DOSE
     Dates: start: 20100901, end: 20110501

REACTIONS (1)
  - TUBERCULOSIS [None]
